FAERS Safety Report 6087502-X (Version None)
Quarter: 2009Q1

REPORT INFORMATION
  Report Type: 
  Country: None (occurrence: None)
  Receive Date: 20090218
  Receipt Date: 20090218
  Transmission Date: 20090719
  Serious: Yes (Disabling, Other)
  Sender: FDA-Public Use
  Company Number: None

PATIENT
  Age: 33 Year
  Sex: Male
  Weight: 90.7194 kg

DRUGS (1)
  1. CIPRO [Suspect]
     Indication: EPIDIDYMITIS
     Dosage: 500MG 2 X DAY PO
     Route: 048
     Dates: start: 20080815, end: 20080915

REACTIONS (8)
  - ARTHRALGIA [None]
  - DIZZINESS [None]
  - HYPOAESTHESIA [None]
  - MYODESOPSIA [None]
  - PAIN [None]
  - PARAESTHESIA [None]
  - TENDONITIS [None]
  - TINNITUS [None]
